FAERS Safety Report 17256921 (Version 1)
Quarter: 2020Q1

REPORT INFORMATION
  Report Type: Spontaneous
  Country: US (occurrence: US)
  Receive Date: 20200109
  Receipt Date: 20200109
  Transmission Date: 20200409
  Serious: Yes (Disabling)
  Sender: FDA-Public Use
  Company Number: None

PATIENT
  Age: 69 Year
  Sex: Male
  Weight: 78.75 kg

DRUGS (6)
  1. MYRBETRIQ [Suspect]
     Active Substance: MIRABEGRON
     Indication: MICTURITION URGENCY
     Dosage: ?          QUANTITY:1 TABLET(S);?
     Route: 048
  2. PRAMIPEXOLE 0.25MG [Concomitant]
  3. MULTIVITAMIN, B-12 (2500 MCG) [Concomitant]
  4. CARB/LEVO 25 - 100 MG [Concomitant]
  5. TAMSULOSIN 0.4MG [Concomitant]
     Active Substance: TAMSULOSIN
  6. D3 (50MCG) [Concomitant]

REACTIONS (2)
  - Sinus pain [None]
  - Headache [None]

NARRATIVE: CASE EVENT DATE: 20200102
